APPROVED DRUG PRODUCT: CLINDAMYCIN PHOSPHATE AND BENZOYL PEROXIDE
Active Ingredient: BENZOYL PEROXIDE; CLINDAMYCIN PHOSPHATE
Strength: 5%;EQ 1% BASE
Dosage Form/Route: GEL;TOPICAL
Application: A209252 | Product #001 | TE Code: AB
Applicant: GLENMARK SPECIALTY SA
Approved: Mar 14, 2019 | RLD: No | RS: Yes | Type: RX